FAERS Safety Report 9443117 (Version 1)
Quarter: 2013Q3

REPORT INFORMATION
  Report Type: Spontaneous
  Country: GB (occurrence: GB)
  Receive Date: 20130806
  Receipt Date: 20130806
  Transmission Date: 20140515
  Serious: Yes (Other)
  Sender: FDA-Public Use
  Company Number: GB-ACTAVIS-2013-13676

PATIENT
  Sex: 0

DRUGS (1)
  1. FINASTERIDE (UNKNOWN) [Suspect]
     Indication: PRODUCT USED FOR UNKNOWN INDICATION
     Dosage: 5 MG, UNKNOWN
     Route: 065

REACTIONS (3)
  - Hyperemesis gravidarum [Recovered/Resolved]
  - Occupational exposure to product [Recovered/Resolved]
  - Maternal exposure during pregnancy [Recovered/Resolved]
